FAERS Safety Report 24294143 (Version 1)
Quarter: 2024Q3

REPORT INFORMATION
  Report Type: Spontaneous
  Country: US (occurrence: US)
  Receive Date: 20240906
  Receipt Date: 20240906
  Transmission Date: 20241017
  Serious: No
  Sender: DOMPE FARMACEUTICI
  Company Number: US-FARMAPROD-202405-1886

PATIENT
  Sex: Male

DRUGS (12)
  1. OXERVATE [Suspect]
     Active Substance: CENEGERMIN-BKBJ
     Indication: Neurotrophic keratopathy
     Route: 047
     Dates: start: 20240509
  2. OXERVATE [Suspect]
     Active Substance: CENEGERMIN-BKBJ
  3. MULTIVITAMIN 50 PLUS [Concomitant]
  4. VITAMIN D3 [Concomitant]
     Active Substance: CHOLECALCIFEROL
  5. SYSTANE COMPLETE [Concomitant]
     Active Substance: PROPYLENE GLYCOL
  6. ELIQUIS [Concomitant]
     Active Substance: APIXABAN
  7. ENTRESTO [Concomitant]
     Active Substance: SACUBITRIL\VALSARTAN
     Dosage: 24 MG-26MG
  8. CARVEDILOL [Concomitant]
     Active Substance: CARVEDILOL
  9. FUROSEMIDE [Concomitant]
     Active Substance: FUROSEMIDE
  10. ISOSORBIDE DINITRATE [Concomitant]
     Active Substance: ISOSORBIDE DINITRATE
  11. PRIMIDONE [Concomitant]
     Active Substance: PRIMIDONE
  12. PANTOPRAZOLE SODIUM [Concomitant]
     Active Substance: PANTOPRAZOLE SODIUM

REACTIONS (3)
  - Eye pain [Not Recovered/Not Resolved]
  - Eye discharge [Unknown]
  - Vision blurred [Not Recovered/Not Resolved]
